FAERS Safety Report 4779424-9 (Version None)
Quarter: 2005Q3

REPORT INFORMATION
  Report Type: 
  Country: None (occurrence: None)
  Receive Date: 20050914
  Receipt Date: 20050223
  Transmission Date: 20060218
  Serious: Yes (Life-Threatening, Other)
  Sender: FDA-Public Use
  Company Number: 163-20785-05010387

PATIENT
  Age: 46 Year
  Sex: Female

DRUGS (6)
  1. THALOMID [Suspect]
     Indication: CYSTITIS INTERSTITIAL
     Dosage: 100 MG, DAILY, ORAL
     Route: 048
     Dates: start: 20041124, end: 20041201
  2. OXYCONTIN [Concomitant]
  3. LEVOXYL [Concomitant]
  4. PREMARIN [Concomitant]
  5. PROCHLORPERAZINE MALEATE [Concomitant]
  6. NEXIUM [Concomitant]

REACTIONS (4)
  - CONDITION AGGRAVATED [None]
  - DERMATITIS BULLOUS [None]
  - IRRITABLE BOWEL SYNDROME [None]
  - PLATELET COUNT DECREASED [None]
